FAERS Safety Report 21361189 (Version 2)
Quarter: 2022Q4

REPORT INFORMATION
  Report Type: Spontaneous
  Country: US (occurrence: None)
  Receive Date: 20220921
  Receipt Date: 20221019
  Transmission Date: 20230113
  Serious: No
  Sender: FDA-Public Use
  Company Number: 2022A317840

PATIENT
  Age: 612 Month
  Sex: Male
  Weight: 156.5 kg

DRUGS (2)
  1. BYDUREON BCISE [Suspect]
     Active Substance: EXENATIDE
     Indication: Diabetes mellitus
     Route: 058
     Dates: start: 202110
  2. INSULIN NOS [Concomitant]
     Active Substance: INSULIN NOS

REACTIONS (9)
  - Muscular weakness [Unknown]
  - Rash [Not Recovered/Not Resolved]
  - Injection site pain [Unknown]
  - Injection site haemorrhage [Recovered/Resolved]
  - Injection site indentation [Unknown]
  - Incorrect dose administered by device [Unknown]
  - Wrong technique in device usage process [Unknown]
  - Device leakage [Unknown]
  - Device malfunction [Unknown]

NARRATIVE: CASE EVENT DATE: 20211001
